FAERS Safety Report 4999388-2 (Version None)
Quarter: 2006Q2

REPORT INFORMATION
  Report Type: 
  Country: None (occurrence: None)
  Receive Date: 20060511
  Receipt Date: 20060428
  Transmission Date: 20061013
  Serious: Yes (Other)
  Sender: FDA-Public Use
  Company Number: PHBS2006ES06747

PATIENT
  Age: 1 Day
  Sex: Male
  Weight: 1280 kg

DRUGS (3)
  1. METYRAPONE [Suspect]
     Route: 064
  2. HYDROCORTISONE [Suspect]
     Route: 064
  3. BETAMETHASONE [Concomitant]
     Route: 064

REACTIONS (3)
  - DRUG EXPOSURE DURING PREGNANCY [None]
  - NEONATAL RESPIRATORY DISTRESS SYNDROME [None]
  - PREMATURE BABY [None]
